FAERS Safety Report 12911965 (Version 2)
Quarter: 2016Q4

REPORT INFORMATION
  Report Type: Spontaneous
  Country: DE (occurrence: DE)
  Receive Date: 20161104
  Receipt Date: 20161129
  Transmission Date: 20170207
  Serious: Yes (Hospitalization)
  Sender: FDA-Public Use
  Company Number: DE-ELI_LILLY_AND_COMPANY-DE201611000227

PATIENT
  Age: 53 Year
  Sex: Male
  Weight: 77 kg

DRUGS (3)
  1. ERBITUX [Suspect]
     Active Substance: CETUXIMAB
     Indication: HEAD AND NECK CANCER
     Dosage: 816 MG, UNKNOWN
     Route: 042
     Dates: start: 20161010, end: 20161010
  2. CISPLATIN. [Suspect]
     Active Substance: CISPLATIN
     Indication: HEAD AND NECK CANCER
     Dosage: 204 MG, UNKNOWN
     Route: 042
     Dates: start: 20161010, end: 20161010
  3. 5 FU [Suspect]
     Active Substance: FLUOROURACIL
     Indication: HEAD AND NECK CANCER
     Dosage: 8160 MG, UNKNOWN
     Route: 042
     Dates: start: 20161010, end: 20161013

REACTIONS (4)
  - Asthenia [Unknown]
  - Dyspnoea [Unknown]
  - Mucosal inflammation [Unknown]
  - Circulatory collapse [Unknown]

NARRATIVE: CASE EVENT DATE: 2016
